FAERS Safety Report 6665919-X (Version None)
Quarter: 2010Q2

REPORT INFORMATION
  Report Type: 
  Country: None (occurrence: None)
  Receive Date: 20100402
  Receipt Date: 20100325
  Transmission Date: 20101027
  Serious: Yes (Hospitalization)
  Sender: FDA-Public Use
  Company Number: JP-ROCHE-694631

PATIENT
  Sex: Male

DRUGS (3)
  1. AVASTIN [Suspect]
     Indication: NON-SMALL CELL LUNG CANCER
     Route: 041
     Dates: start: 20100305
  2. CARBOPLATIN [Concomitant]
     Route: 041
  3. ALIMTA [Concomitant]
     Route: 041

REACTIONS (1)
  - PNEUMOTHORAX [None]
